FAERS Safety Report 18710701 (Version 1)
Quarter: 2021Q1

REPORT INFORMATION
  Report Type: Spontaneous
  Country: DE (occurrence: DE)
  Receive Date: 20210107
  Receipt Date: 20210107
  Transmission Date: 20210419
  Serious: Yes (Other)
  Sender: FDA-Public Use
  Company Number: DE-AUROBINDO-AUR-APL-2021-000415

PATIENT
  Age: 70 Year
  Sex: Female
  Weight: 70 kg

DRUGS (10)
  1. ASPIRIN. [Concomitant]
     Active Substance: ASPIRIN
     Indication: CARDIAC DISORDER
  2. LOPERAMID [Suspect]
     Active Substance: LOPERAMIDE
     Indication: GASTROINTESTINAL DISORDER
     Dosage: UNK
     Route: 065
  3. L?THYROXIN [Suspect]
     Active Substance: LEVOTHYROXINE SODIUM
     Indication: HYPOTHYROIDISM
     Dosage: UNK
     Route: 065
     Dates: start: 200011
  4. INSULIN [Concomitant]
     Active Substance: INSULIN NOS
     Indication: PRODUCT USED FOR UNKNOWN INDICATION
     Dosage: 5 DOSAGE FORM, ONCE A DAY
     Route: 065
     Dates: start: 200011
  5. DEHYDRO SANOL TRI [Concomitant]
     Indication: CARDIAC DISORDER
  6. NOVORAPID [Concomitant]
     Active Substance: INSULIN ASPART
     Indication: MONOGENIC DIABETES
     Dosage: 5 DOSAGE FORM, ONCE A DAY
     Route: 065
     Dates: start: 202011
  7. DEHYDRO SANOL TRI [Concomitant]
     Indication: URINARY RETENTION
     Dosage: 1 DOSAGE FORM, ONCE A DAY
     Route: 065
     Dates: start: 200011
  8. ASPIRIN. [Concomitant]
     Active Substance: ASPIRIN
     Indication: HEADACHE
     Dosage: 1 DOSAGE FORM
     Route: 065
     Dates: start: 202011
  9. ASPIRIN. [Concomitant]
     Active Substance: ASPIRIN
     Indication: STENT PLACEMENT
  10. ASPIRIN. [Concomitant]
     Active Substance: ASPIRIN
     Indication: DIZZINESS

REACTIONS (5)
  - Headache [Recovering/Resolving]
  - Spinal operation [Recovered/Resolved]
  - Tachycardia [Not Recovered/Not Resolved]
  - Dizziness [Recovering/Resolving]
  - Palpitations [Recovering/Resolving]

NARRATIVE: CASE EVENT DATE: 2019
